FAERS Safety Report 25401077 (Version 4)
Quarter: 2025Q3

REPORT INFORMATION
  Report Type: Report from Study
  Country: US (occurrence: US)
  Receive Date: 20250605
  Receipt Date: 20250925
  Transmission Date: 20251021
  Serious: No
  Sender: MALLINCKRODT
  Company Number: US-MALLINCKRODT-MNK202502719

PATIENT
  Sex: Male

DRUGS (2)
  1. CORTICOTROPIN [Suspect]
     Active Substance: CORTICOTROPIN
     Indication: Proteinuria
     Route: 058
  2. PREDNISONE [Concomitant]
     Active Substance: PREDNISONE
     Dates: start: 2020

REACTIONS (7)
  - Fear of injection [Unknown]
  - Weight decreased [Recovered/Resolved]
  - Symptom recurrence [Unknown]
  - Injection site pain [Unknown]
  - Injection site vesicles [Unknown]
  - Oedema [Unknown]
  - Inappropriate schedule of product administration [Unknown]
